FAERS Safety Report 4406720-7 (Version None)
Quarter: 2004Q3

REPORT INFORMATION
  Report Type: 
  Country: None (occurrence: None)
  Receive Date: 20040715
  Receipt Date: 20040707
  Transmission Date: 20050211
  Serious: Yes (Other)
  Sender: FDA-Public Use
  Company Number: 2004-07-0136

PATIENT
  Age: 47 Year
  Sex: Male

DRUGS (3)
  1. REBETOL [Suspect]
     Indication: HEPATITIS C
     Dosage: 800 MG QD ORAL
     Route: 048
     Dates: start: 20030708, end: 20040512
  2. INFERAX (INTERFERON ALFACON-1) [Suspect]
     Indication: HEPATITIS C
     Dosage: 9 MCG QD SUBCUTANEOUS
     Route: 058
     Dates: start: 20030708, end: 20040512
  3. AMANTADINE SULFATE [Concomitant]

REACTIONS (3)
  - GINGIVAL DISORDER [None]
  - JAW DISORDER [None]
  - TOOTH LOSS [None]
